FAERS Safety Report 4436842-6 (Version None)
Quarter: 2004Q3

REPORT INFORMATION
  Report Type: 
  Country: None (occurrence: None)
  Receive Date: 20040827
  Receipt Date: 20040820
  Transmission Date: 20050211
  Serious: Yes (Hospitalization, Other)
  Sender: FDA-Public Use
  Company Number: 04-00490

PATIENT
  Age: 60 Year
  Sex: Female

DRUGS (1)
  1. FAMOTIDINE [Suspect]

REACTIONS (4)
  - ACUTE GENERALISED EXANTHEMATOUS PUSTULOSIS [None]
  - NIKOLSKY'S SIGN [None]
  - SKIN INFECTION [None]
  - STAPHYLOCOCCAL INFECTION [None]
